FAERS Safety Report 8344852-1 (Version None)
Quarter: 2012Q1

REPORT INFORMATION
  Report Type: 
  Country: None (occurrence: None)
  Receive Date: 20120315
  Receipt Date: 20110511
  Transmission Date: 20120608
  Serious: No
  Sender: FDA-Public Use
  Company Number: PHHY2011US40286

PATIENT
  Age: 39 Year
  Sex: Female

DRUGS (4)
  1. GILENYA [Suspect]
     Dosage: 0.5 MG, QD
     Dates: start: 20101101
  2. ZANAFLEX [Concomitant]
  3. VESICARE [Concomitant]
  4. VITAMIN D [Concomitant]

REACTIONS (4)
  - SOMNOLENCE [None]
  - FATIGUE [None]
  - DANDRUFF [None]
  - ALOPECIA [None]
